FAERS Safety Report 9308686 (Version 1)
Quarter: 2013Q2

REPORT INFORMATION
  Report Type: Spontaneous
  Country: BR (occurrence: BR)
  Receive Date: 20130524
  Receipt Date: 20130524
  Transmission Date: 20140414
  Serious: Yes (Hospitalization)
  Sender: FDA-Public Use
  Company Number: BR-009507513-1305BRA012422

PATIENT
  Sex: Male
  Weight: 102 kg

DRUGS (6)
  1. VYTORIN [Suspect]
     Indication: BLOOD TRIGLYCERIDES INCREASED
     Dosage: 10/20 MG, QD
     Route: 048
     Dates: start: 2010
  2. VYTORIN [Suspect]
     Indication: BLOOD CHOLESTEROL INCREASED
  3. ATACAND HCT [Concomitant]
     Indication: BLOOD PRESSURE ABNORMAL
     Dosage: UNK, QD
     Route: 048
     Dates: start: 2008
  4. SELO-ZOK [Concomitant]
     Indication: HEART RATE INCREASED
     Dosage: UNK, QD
     Route: 048
     Dates: start: 2009
  5. SELO-ZOK [Concomitant]
     Indication: ISCHAEMIC HEART DISEASE PROPHYLAXIS
  6. SOMALGIN [Concomitant]
     Indication: ANTIPLATELET THERAPY
     Dosage: 100 MG, QD
     Route: 048
     Dates: start: 2003

REACTIONS (2)
  - Angioplasty [Unknown]
  - Coronary arterial stent insertion [Unknown]
